FAERS Safety Report 22359296 (Version 7)
Quarter: 2025Q1

REPORT INFORMATION
  Report Type: Spontaneous
  Country: BR (occurrence: BR)
  Receive Date: 20230524
  Receipt Date: 20250313
  Transmission Date: 20250409
  Serious: Yes (Hospitalization, Other)
  Sender: GLAXOSMITHKLINE
  Company Number: BR-GLAXOSMITHKLINE-BR2023AMR070590

PATIENT

DRUGS (8)
  1. BENLYSTA [Suspect]
     Active Substance: BELIMUMAB
     Indication: Systemic lupus erythematosus
     Dosage: 840 MG, Q4W (7 VIALS OF 120 MG)
     Dates: start: 20221006
  2. BENLYSTA [Suspect]
     Active Substance: BELIMUMAB
     Dosage: 810 MG, Q4W
  3. PREDNISONE [Concomitant]
     Active Substance: PREDNISONE
     Indication: Product used for unknown indication
     Dosage: 40 MG, QD (2 TABLETS EVERY DAY FOR 4 DAYS AFTER TAKING 1 TABLET EVERY DAY FOR 5 DAYS)
     Route: 048
  4. PREDNISONE [Concomitant]
     Active Substance: PREDNISONE
     Dosage: 20 MG, QD (1 TABLET EVERYDAY FOR 5 DAYS)
     Route: 048
  5. PREDNISONE [Concomitant]
     Active Substance: PREDNISONE
     Dosage: 5 MG, QD, 2 TABLETS EVERYDAY FOR 5 DAYS AND AFTER TAKING 1 TABLET EVERYDAY
     Route: 048
  6. PANTOPRAZOLE [Concomitant]
     Active Substance: PANTOPRAZOLE
     Indication: Product used for unknown indication
     Dosage: 1 DF, QD (IN THE MORNING)
     Route: 048
  7. DIPYRONE\PROMETHAZINE HYDROCHLORIDE [Concomitant]
     Active Substance: DIPYRONE\PROMETHAZINE HYDROCHLORIDE
     Indication: Product used for unknown indication
     Dosage: 1 DF, QID (EVERY 6 HOURS) IF THE PATIENT IS PAINFUL OR FEVERISH
  8. ONDANSETRON HYDROCHLORIDE [Concomitant]
     Active Substance: ONDANSETRON HYDROCHLORIDE
     Indication: Product used for unknown indication
     Dosage: 1 DF, TID (EVERY 8 HOURS)

REACTIONS (6)
  - Systemic lupus erythematosus [Not Recovered/Not Resolved]
  - Painful respiration [Not Recovered/Not Resolved]
  - Pericardial effusion [Not Recovered/Not Resolved]
  - Dyspnoea [Unknown]
  - Chest pain [Unknown]
  - Product dose omission issue [Unknown]

NARRATIVE: CASE EVENT DATE: 20240401
